FAERS Safety Report 5085175-6 (Version None)
Quarter: 2006Q3

REPORT INFORMATION
  Report Type: 
  Country: None (occurrence: None)
  Receive Date: 20060817
  Receipt Date: 20060801
  Transmission Date: 20061208
  Serious: Yes (Other)
  Sender: FDA-Public Use
  Company Number: DSA_28538_2006

PATIENT
  Sex: Female

DRUGS (6)
  1. ATIVAN [Suspect]
     Indication: ANXIETY
     Dosage: DF BID PO
     Route: 048
     Dates: start: 19960101
  2. LORAZEPAM [Suspect]
     Indication: ANXIETY
     Dosage: DF BID PO
     Route: 048
     Dates: start: 19960101
  3. STELAZINE [Concomitant]
  4. COREG [Concomitant]
  5. NEXIUM [Concomitant]
  6. WELLBUTRIN [Concomitant]

REACTIONS (3)
  - EYE HAEMORRHAGE [None]
  - MACULAR DEGENERATION [None]
  - RETINAL DISORDER [None]
